FAERS Safety Report 5163738-7 (Version None)
Quarter: 2006Q4

REPORT INFORMATION
  Report Type: 
  Country: None (occurrence: None)
  Receive Date: 20061124
  Receipt Date: 20061109
  Transmission Date: 20070319
  Serious: Yes (Death)
  Sender: FDA-Public Use
  Company Number: 2006113367

PATIENT
  Age: 43 Year
  Sex: Female

DRUGS (7)
  1. ALPRAZOLAM [Suspect]
     Dosage: ORAL
     Route: 048
  2. MORPHINE [Suspect]
     Dosage: ORAL
     Route: 048
  3. IBUPROFEN [Suspect]
     Dosage: ORAL
     Route: 048
  4. DEXTROAMPETAMINE SULFATE TAB [Suspect]
     Dosage: ORAL
     Route: 048
  5. ALL OTHER THERAPEUTIC PRODUCTS (ALL OTHER THERAPEUTIC PRODUCTS) [Suspect]
     Dosage: ORAL
     Route: 048
  6. METHADONE HYDROCHLORIDE [Suspect]
     Dosage: ORAL
     Route: 048
  7. DYAZIDE (HYDROCHLOROTHIAZIDE,TRIAMTERINE) [Suspect]
     Dosage: ORAL
     Route: 048

REACTIONS (4)
  - CARDIAC ARREST [None]
  - COMPLETED SUICIDE [None]
  - MULTIPLE DRUG OVERDOSE INTENTIONAL [None]
  - RESPIRATORY ARREST [None]
